FAERS Safety Report 23228055 (Version 3)
Quarter: 2024Q1

REPORT INFORMATION
  Report Type: Report from Study
  Country: RU (occurrence: RU)
  Receive Date: 20231125
  Receipt Date: 20240122
  Transmission Date: 20240410
  Serious: Yes (Hospitalization, Other)
  Sender: FDA-Public Use
  Company Number: RU-002147023-NVSC2023RU251151

PATIENT
  Age: 10 Year
  Sex: Female

DRUGS (2)
  1. GLIVEC [Suspect]
     Active Substance: IMATINIB MESYLATE
     Indication: Chronic myeloid leukaemia
     Dosage: 200 MG, BID
     Route: 065
     Dates: start: 201909
  2. GLIVEC [Suspect]
     Active Substance: IMATINIB MESYLATE
     Dosage: 450 MG, BID
     Route: 065
     Dates: end: 202005

REACTIONS (9)
  - Respiratory failure [Recovered/Resolved]
  - Pleurisy [Recovered/Resolved]
  - Pneumonia [Recovered/Resolved]
  - Dyspnoea [Unknown]
  - Cough [Unknown]
  - Body temperature increased [Unknown]
  - Respiratory tract infection viral [Unknown]
  - Incorrect dose administered [Unknown]
  - Therapy partial responder [Unknown]

NARRATIVE: CASE EVENT DATE: 20200401
